FAERS Safety Report 14369273 (Version 2)
Quarter: 2018Q1

REPORT INFORMATION
  Report Type: Spontaneous
  Country: DE (occurrence: DE)
  Receive Date: 20180109
  Receipt Date: 20180117
  Transmission Date: 20180509
  Serious: Yes (Death, Other)
  Sender: FDA-Public Use
  Company Number: DE-009507513-1801DEU002470

PATIENT
  Age: 45 Year
  Sex: Female

DRUGS (1)
  1. KEYTRUDA [Suspect]
     Active Substance: PEMBROLIZUMAB
     Indication: LUNG NEOPLASM MALIGNANT
     Dosage: UNK UNK, ONCE
     Dates: start: 201712, end: 201712

REACTIONS (3)
  - Respiratory distress [Unknown]
  - Lung neoplasm malignant [Fatal]
  - Fear [Unknown]

NARRATIVE: CASE EVENT DATE: 201712
